FAERS Safety Report 13874621 (Version 1)
Quarter: 2017Q3

REPORT INFORMATION
  Report Type: Spontaneous
  Country: US (occurrence: US)
  Receive Date: 20170816
  Receipt Date: 20170816
  Transmission Date: 20171127
  Serious: No
  Sender: FDA-Public Use
  Company Number: US-ROCHE-1103184

PATIENT
  Age: 57 Year
  Sex: Female

DRUGS (5)
  1. AVASTIN [Suspect]
     Active Substance: BEVACIZUMAB
     Indication: RETINAL VEIN OCCLUSION
     Route: 050
  2. LUCENTIS [Suspect]
     Active Substance: RANIBIZUMAB
     Indication: RETINAL VEIN OCCLUSION
     Route: 050
     Dates: start: 20120510
  3. OCUVITE [Concomitant]
     Active Substance: VITAMINS
     Route: 065
     Dates: start: 20120726, end: 20120811
  4. VITAMIN C [Concomitant]
     Active Substance: ASCORBIC ACID
     Route: 065
     Dates: start: 20110808, end: 20120811
  5. VITAMIN D [Concomitant]
     Active Substance: CHOLECALCIFEROL
     Route: 065
     Dates: start: 20110808, end: 20120811

REACTIONS (4)
  - Throat irritation [Unknown]
  - Urticaria [Recovering/Resolving]
  - Lung disorder [Unknown]
  - Eye pain [Unknown]

NARRATIVE: CASE EVENT DATE: 201208
